FAERS Safety Report 6194230-9 (Version None)
Quarter: 2009Q2

REPORT INFORMATION
  Report Type: 
  Country: None (occurrence: None)
  Receive Date: 20090515
  Receipt Date: 20090515
  Transmission Date: 20091009
  Serious: Yes (Hospitalization)
  Sender: FDA-Public Use
  Company Number: None

PATIENT
  Sex: Female
  Weight: 103.2 kg

DRUGS (9)
  1. NPLATE [Suspect]
     Indication: IDIOPATHIC THROMBOCYTOPENIC PURPURA
     Dosage: 322MCG Q7D SQ 2 DOSES TOTAL
     Route: 058
     Dates: start: 20090413
  2. NPLATE [Suspect]
     Indication: IDIOPATHIC THROMBOCYTOPENIC PURPURA
     Dosage: 322MCG Q7D SQ 2 DOSES TOTAL
     Route: 058
     Dates: start: 20090420
  3. LISINOPRIL [Concomitant]
  4. ATIVAN [Concomitant]
  5. OMEPRAZOLE [Concomitant]
  6. BENICAR [Concomitant]
  7. SPIRIVA [Concomitant]
  8. OXYCONTIN [Concomitant]
  9. BYSTOLIC [Concomitant]

REACTIONS (4)
  - ATRIAL THROMBOSIS [None]
  - DEEP VEIN THROMBOSIS [None]
  - PULMONARY EMBOLISM [None]
  - PULMONARY INFARCTION [None]
